FAERS Safety Report 23877506 (Version 1)
Quarter: 2024Q2

REPORT INFORMATION
  Report Type: Spontaneous
  Country: ZA (occurrence: None)
  Receive Date: 20240521
  Receipt Date: 20240521
  Transmission Date: 20240716
  Serious: Yes (Hospitalization)
  Sender: FDA-Public Use
  Company Number: 2024A113586

PATIENT
  Age: 29950 Day
  Sex: Female

DRUGS (9)
  1. DAPAGLIFLOZIN PROPANEDIOL [Suspect]
     Active Substance: DAPAGLIFLOZIN PROPANEDIOL
     Indication: Diabetes mellitus
     Dosage: 10.0MG UNKNOWN
     Route: 048
  2. LIPOGEN [Concomitant]
     Indication: Blood cholesterol
     Dosage: 40.0MG UNKNOWN
     Route: 048
  3. CLONAZEPAM [Concomitant]
     Active Substance: CLONAZEPAM
     Indication: Anxiety
     Dosage: 0.5MG UNKNOWN
     Route: 048
  4. FUROSEMIDE [Concomitant]
     Active Substance: FUROSEMIDE
     Indication: Hypertension
     Dosage: 40.0MG UNKNOWN
     Route: 048
  5. SPIRACTIN [Concomitant]
     Indication: Hypertension
     Dosage: 25.0MG UNKNOWN
     Route: 048
  6. AMITRIPTYLINE HCL KIARA [Concomitant]
     Indication: Depression
     Dosage: 25.0MG UNKNOWN
     Route: 048
  7. OMIFLUX [Concomitant]
     Indication: Ulcer
     Dosage: 20.0MG UNKNOWN
     Route: 048
  8. VORTIOXETINE LUNDBECK [Concomitant]
     Indication: Depression
     Dosage: 5.0MG UNKNOWN
     Route: 048
  9. HUMALOG MIX 25 CART 100 IU [Concomitant]
     Indication: Diabetes mellitus
     Dosage: 100.0IU UNKNOWN
     Route: 058

REACTIONS (2)
  - Fluid retention [Unknown]
  - Lung disorder [Unknown]
